FAERS Safety Report 5692443-3 (Version None)
Quarter: 2008Q2

REPORT INFORMATION
  Report Type: 
  Country: None (occurrence: None)
  Receive Date: 20080402
  Receipt Date: 20070921
  Transmission Date: 20081010
  Serious: Yes (Hospitalization)
  Sender: FDA-Public Use
  Company Number: US-BAYER-US-2007-033582

PATIENT
  Age: 57 Year
  Sex: Female
  Weight: 57 kg

DRUGS (6)
  1. LEUKINE [Suspect]
     Indication: NEUTROPENIA
     Dosage: UNIT DOSE: 500 ?G
     Route: 058
     Dates: start: 20070709, end: 20070709
  2. PACLITAXEL [Concomitant]
     Indication: BREAST CANCER
  3. SPIRIVA [Concomitant]
  4. ALBUTEROL [Concomitant]
  5. XANAX [Concomitant]
  6. LASIX [Concomitant]

REACTIONS (3)
  - CHEST PAIN [None]
  - HYPERHIDROSIS [None]
  - PALLOR [None]
